FAERS Safety Report 9675921 (Version 2)
Quarter: 2013Q4

REPORT INFORMATION
  Report Type: Spontaneous
  Country: US (occurrence: US)
  Receive Date: 20131107
  Receipt Date: 20131206
  Transmission Date: 20140711
  Serious: Yes (Death, Other)
  Sender: FDA-Public Use
  Company Number: US-PFIZER INC-2013317404

PATIENT
  Age: 71 Year
  Sex: Female
  Weight: 92.06 kg

DRUGS (2)
  1. CELEBREX [Suspect]
     Indication: ARTHRITIS
     Dosage: 200 MG, UNK
  2. BABY ASPIRIN [Concomitant]
     Dosage: UNK

REACTIONS (5)
  - Haematoma [Fatal]
  - Fall [Not Recovered/Not Resolved]
  - Head injury [Not Recovered/Not Resolved]
  - Skull fracture [Not Recovered/Not Resolved]
  - Haemorrhage [Not Recovered/Not Resolved]
